FAERS Safety Report 6142606-8 (Version None)
Quarter: 2009Q2

REPORT INFORMATION
  Report Type: 
  Country: None (occurrence: None)
  Receive Date: 20090402
  Receipt Date: 20090402
  Transmission Date: 20091009
  Serious: No
  Sender: FDA-Public Use
  Company Number: None

PATIENT
  Sex: Female
  Weight: 68.18 kg

DRUGS (12)
  1. GABAPENTIN [Suspect]
     Dosage: 300 MG CAPSULE MG TID ORAL
     Route: 048
     Dates: start: 20090306, end: 20090401
  2. COREG [Concomitant]
  3. COZAAR [Concomitant]
  4. EPIPEN [Concomitant]
  5. HYDROCORTISONE CREAM [Concomitant]
  6. LIDODERM PATCH (LIDOCAINE PATCH) [Concomitant]
  7. LORAZEPAM [Concomitant]
  8. METROGEL (METRONIDAZOLE GEL) [Concomitant]
  9. PROTONIX [Concomitant]
  10. TRIAMCINOLONE [Concomitant]
  11. VIT B12 (CYANOCOBALAMIN) [Concomitant]
  12. VITAMIN D2 (ERGOCALCIFEROL) [Concomitant]

REACTIONS (1)
  - NAUSEA [None]
